FAERS Safety Report 4450620-3 (Version None)
Quarter: 2004Q3

REPORT INFORMATION
  Report Type: 
  Country: None (occurrence: None)
  Receive Date: 20040913
  Receipt Date: 20040512
  Transmission Date: 20050211
  Serious: No
  Sender: FDA-Public Use
  Company Number: 2004-BP-03719BP(0)

PATIENT
  Sex: Male

DRUGS (9)
  1. SPIRIVA [Suspect]
     Indication: ACCIDENTAL EXPOSURE
     Route: 055
     Dates: start: 20040510, end: 20040511
  2. .. [Concomitant]
  3. .. [Concomitant]
  4. .. [Concomitant]
  5. .. [Concomitant]
  6. .. [Concomitant]
  7. .. [Concomitant]
  8. .. [Concomitant]
  9. .. [Concomitant]

REACTIONS (1)
  - RASH [None]
